FAERS Safety Report 9611890 (Version 2)
Quarter: 2013Q4

REPORT INFORMATION
  Report Type: Spontaneous
  Country: JP (occurrence: JP)
  Receive Date: 20131010
  Receipt Date: 20131029
  Transmission Date: 20140711
  Serious: Yes (Other)
  Sender: FDA-Public Use
  Company Number: JP-009507513-1310JPN003232

PATIENT
  Age: 56 Year
  Sex: Male

DRUGS (8)
  1. MK-0000 [Suspect]
     Indication: PLASMA CELL MYELOMA
     Dosage: 40 MG PER DAY WEEKLY.
  2. DEXAMETHASONE [Suspect]
  3. LENALIDOMIDE [Suspect]
     Indication: PLASMA CELL MYELOMA
     Dosage: 15 MG, QD
     Route: 048
  4. LENALIDOMIDE [Suspect]
     Dosage: 5 MG, QD
     Route: 048
     Dates: start: 201202
  5. BORTEZOMIB [Concomitant]
     Route: 065
  6. CYCLOPHOSPHAMIDE [Concomitant]
     Dosage: UNK
     Route: 065
  7. CYCLOPHOSPHAMIDE [Concomitant]
     Dosage: UNK
     Route: 065
  8. THALIDOMIDE [Concomitant]
     Route: 048

REACTIONS (1)
  - Cytomegalovirus chorioretinitis [Recovering/Resolving]
